FAERS Safety Report 7205112-5 (Version None)
Quarter: 2010Q4

REPORT INFORMATION
  Report Type: 
  Country: None (occurrence: None)
  Receive Date: 20101230
  Receipt Date: 20101217
  Transmission Date: 20110411
  Serious: Yes (Other)
  Sender: FDA-Public Use
  Company Number: US-CELGENEUS-163-21880-10071581

PATIENT
  Sex: Female

DRUGS (3)
  1. REVLIMID [Suspect]
     Indication: MULTIPLE MYELOMA
     Route: 048
     Dates: start: 20070801, end: 20071101
  2. REVLIMID [Suspect]
     Route: 048
     Dates: start: 20100308, end: 20100727
  3. REVLIMID [Suspect]
     Route: 048
     Dates: start: 20101110

REACTIONS (1)
  - BLOOD HUMAN CHORIONIC GONADOTROPIN ABNORMAL [None]
